FAERS Safety Report 17507336 (Version 1)
Quarter: 2020Q1

REPORT INFORMATION
  Report Type: Spontaneous
  Country: US (occurrence: US)
  Receive Date: 20200306
  Receipt Date: 20200306
  Transmission Date: 20200409
  Serious: No
  Sender: FDA-Public Use
  Company Number: US-CELGENEUS-USA-20200300427

PATIENT
  Sex: Female

DRUGS (2)
  1. OTEZLA [Suspect]
     Active Substance: APREMILAST
     Indication: OFF LABEL USE
  2. OTEZLA [Suspect]
     Active Substance: APREMILAST
     Indication: ILL-DEFINED DISORDER
     Dosage: 10/20/30 MG (STARTER PACK)
     Route: 048
     Dates: start: 20200211

REACTIONS (3)
  - Diarrhoea [Unknown]
  - Unevaluable event [Unknown]
  - Headache [Unknown]

NARRATIVE: CASE EVENT DATE: 2020
